FAERS Safety Report 17296733 (Version 6)
Quarter: 2020Q4

REPORT INFORMATION
  Report Type: Report from Study
  Country: US (occurrence: US)
  Receive Date: 20200121
  Receipt Date: 20201217
  Transmission Date: 20210113
  Serious: Yes (Other)
  Sender: FDA-Public Use
  Company Number: NVSC2020US009652

PATIENT
  Sex: Male

DRUGS (3)
  1. ENTRESTO [Suspect]
     Active Substance: SACUBITRIL\VALSARTAN
     Dosage: 50 MG, BID
     Route: 065
  2. ENTRESTO [Suspect]
     Active Substance: SACUBITRIL\VALSARTAN
     Dosage: 1 DF, QD
     Route: 065
     Dates: start: 2019
  3. ENTRESTO [Suspect]
     Active Substance: SACUBITRIL\VALSARTAN
     Indication: PRODUCT USED FOR UNKNOWN INDICATION
     Dosage: 50 MG, BID
     Route: 065
     Dates: start: 2019

REACTIONS (14)
  - Cardiac dysfunction [Recovering/Resolving]
  - Therapeutic response unexpected [Unknown]
  - Hypotension [Unknown]
  - Rash pruritic [Recovered/Resolved]
  - Product dose omission issue [Recovered/Resolved]
  - Inappropriate schedule of product administration [Unknown]
  - Dehydration [Unknown]
  - Drug hypersensitivity [Unknown]
  - Renal disorder [Unknown]
  - Underdose [Unknown]
  - Malaise [Unknown]
  - Throat clearing [Unknown]
  - Diabetes mellitus [Recovered/Resolved]
  - Rhinorrhoea [Unknown]
